FAERS Safety Report 9670242 (Version 2)
Quarter: 2013Q4

REPORT INFORMATION
  Report Type: Spontaneous
  Country: US (occurrence: US)
  Receive Date: 20131105
  Receipt Date: 20131119
  Transmission Date: 20140711
  Serious: Yes (Other)
  Sender: FDA-Public Use
  Company Number: US-MPIJNJ-2013MPI000780

PATIENT
  Age: 81 Year
  Sex: Male

DRUGS (1)
  1. VELCADE [Suspect]
     Indication: PLASMA CELL MYELOMA
     Dosage: 1.3 MG/M2, WEEKLY ON DAYS 1,8, AND 15 OF 28 DAYS CYCLE
     Route: 058
     Dates: start: 20130312, end: 20130815

REACTIONS (1)
  - Arteriovenous graft [Recovered/Resolved]
